FAERS Safety Report 9811106 (Version 2)
Quarter: 2014Q4

REPORT INFORMATION
  Report Type: Spontaneous
  Country: US (occurrence: US)
  Receive Date: 20140110
  Receipt Date: 20141112
  Transmission Date: 20150529
  Serious: Yes (Other)
  Sender: FDA-Public Use
  Company Number: US-SANOFI-AVENTIS-2013SA008815

PATIENT
  Age: 55 Year
  Sex: Male

DRUGS (6)
  1. PLAVIX [Suspect]
     Active Substance: CLOPIDOGREL BISULFATE
     Indication: PERIPHERAL ARTERIAL OCCLUSIVE DISEASE
     Route: 048
     Dates: start: 20060920, end: 20100916
  2. PLAVIX [Suspect]
     Active Substance: CLOPIDOGREL BISULFATE
     Indication: MYOCARDIAL INFARCTION
     Route: 048
     Dates: start: 20060920, end: 20100916
  3. PLAVIX [Suspect]
     Active Substance: CLOPIDOGREL BISULFATE
     Indication: BLOOD VISCOSITY DECREASED
     Route: 048
     Dates: start: 20060920, end: 20100916
  4. PLAVIX [Suspect]
     Active Substance: CLOPIDOGREL BISULFATE
     Indication: STENT PLACEMENT
     Route: 048
     Dates: start: 20060920, end: 20100916
  5. PLAVIX [Suspect]
     Active Substance: CLOPIDOGREL BISULFATE
     Indication: ACUTE CORONARY SYNDROME
     Route: 048
     Dates: start: 20060920, end: 20100916
  6. ASPIRIN. [Suspect]
     Active Substance: ASPIRIN
     Indication: PRODUCT USED FOR UNKNOWN INDICATION
     Dosage: DOSE- ONE LOW DOSE
     Route: 065
     Dates: start: 2006

REACTIONS (5)
  - Epigastric discomfort [Unknown]
  - Abdominal discomfort [Unknown]
  - Gastrooesophageal reflux disease [Unknown]
  - Gastrointestinal haemorrhage [Unknown]
  - Throat irritation [Unknown]

NARRATIVE: CASE EVENT DATE: 20100908
